FAERS Safety Report 14499869 (Version 2)
Quarter: 2021Q1

REPORT INFORMATION
  Report Type: Spontaneous
  Country: US (occurrence: US)
  Receive Date: 20180207
  Receipt Date: 20210223
  Transmission Date: 20210419
  Serious: No
  Sender: FDA-Public Use
  Company Number: US-JAZZ-2014-US-001858

PATIENT
  Sex: Female

DRUGS (4)
  1. XYREM [Suspect]
     Active Substance: SODIUM OXYBATE
     Dosage: 4.5 G, BID
     Route: 048
     Dates: start: 201309
  2. XYREM [Suspect]
     Active Substance: SODIUM OXYBATE
     Indication: NARCOLEPSY
     Dosage: 1.5 G, BID
     Route: 048
     Dates: start: 200801, end: 2008
  3. XYREM [Suspect]
     Active Substance: SODIUM OXYBATE
     Indication: CATAPLEXY
     Dosage: DOSE ADJUSTMENTS
     Route: 048
  4. TRAZODONE [Suspect]
     Active Substance: TRAZODONE HYDROCHLORIDE
     Indication: PRODUCT USED FOR UNKNOWN INDICATION

REACTIONS (2)
  - Nasal congestion [Unknown]
  - Anxiety [Not Recovered/Not Resolved]
